FAERS Safety Report 23440329 (Version 3)
Quarter: 2025Q3

REPORT INFORMATION
  Report Type: Report from Study
  Country: US (occurrence: US)
  Receive Date: 20240124
  Receipt Date: 20250902
  Transmission Date: 20251021
  Serious: Yes (Other)
  Sender: ABBVIE
  Company Number: US-ABBVIE-5599196

PATIENT
  Age: 68 Year
  Sex: Male
  Weight: 106.14 kg

DRUGS (3)
  1. HUMIRA [Suspect]
     Active Substance: ADALIMUMAB
     Indication: Rheumatoid arthritis
     Route: 058
  2. HUMIRA [Suspect]
     Active Substance: ADALIMUMAB
     Indication: Psoriatic arthropathy
     Route: 058
     Dates: start: 20240709
  3. HUMIRA [Suspect]
     Active Substance: ADALIMUMAB
     Dosage: FORM STRENGTH: 40 MG
     Route: 058
     Dates: start: 20220425, end: 202405

REACTIONS (7)
  - Cardiac dysfunction [Unknown]
  - Heart rate irregular [Unknown]
  - Injection site haemorrhage [Recovering/Resolving]
  - Therapeutic product effect decreased [Unknown]
  - Palpitations [Unknown]
  - Rash macular [Unknown]
  - Gastrointestinal disorder [Unknown]
